FAERS Safety Report 8544365-8 (Version None)
Quarter: 2012Q2

REPORT INFORMATION
  Report Type: 
  Country: None (occurrence: None)
  Receive Date: 20120416
  Receipt Date: 20100519
  Transmission Date: 20120825
  Serious: Yes (Other)
  Sender: FDA-Public Use
  Company Number: PHHY2010US32580

PATIENT
  Sex: Female

DRUGS (4)
  1. LIPITOR [Suspect]
  2. DIOVAN [Suspect]
  3. TORSEMIDE [Suspect]
  4. LISINOPRIL [Suspect]

REACTIONS (7)
  - DIZZINESS [None]
  - LIP SWELLING [None]
  - FATIGUE [None]
  - HEART RATE INCREASED [None]
  - PYREXIA [None]
  - HYPERSENSITIVITY [None]
  - COUGH [None]
